FAERS Safety Report 24902135 (Version 3)
Quarter: 2025Q2

REPORT INFORMATION
  Report Type: Spontaneous
  Country: US (occurrence: US)
  Receive Date: 20250129
  Receipt Date: 20250502
  Transmission Date: 20250717
  Serious: No
  Sender: ABBVIE
  Company Number: US-ABBVIE-6106878

PATIENT
  Sex: Female
  Weight: 113 kg

DRUGS (1)
  1. LILETTA [Suspect]
     Active Substance: LEVONORGESTREL
     Indication: Intrauterine contraception
     Route: 015

REACTIONS (2)
  - Menstrual clots [Unknown]
  - Device expulsion [Unknown]
